FAERS Safety Report 20469642 (Version 1)
Quarter: 2022Q1

REPORT INFORMATION
  Report Type: Report from Study
  Country: US (occurrence: US)
  Receive Date: 20220214
  Receipt Date: 20220214
  Transmission Date: 20220423
  Serious: No
  Sender: FDA-Public Use
  Company Number: US-PHARMACOVIGILANCE-US-KAD-21-00326

PATIENT
  Age: 71 Year
  Sex: Female

DRUGS (9)
  1. BELUMOSUDIL [Suspect]
     Active Substance: BELUMOSUDIL
     Indication: Product used for unknown indication
     Dosage: 200 MILLIGRAM, BID
     Dates: start: 20211111, end: 20220111
  2. TYLENOL [Concomitant]
     Active Substance: ACETAMINOPHEN
     Indication: Neck pain
  3. TYLENOL [Concomitant]
     Active Substance: ACETAMINOPHEN
     Indication: Back pain
  4. TYLENOL [Concomitant]
     Active Substance: ACETAMINOPHEN
     Indication: Pain
  5. TYLENOL [Concomitant]
     Active Substance: ACETAMINOPHEN
     Indication: Eye irritation
  6. IBUPROFEN [Concomitant]
     Active Substance: IBUPROFEN
     Indication: Neck pain
  7. IBUPROFEN [Concomitant]
     Active Substance: IBUPROFEN
     Indication: Back pain
  8. IBUPROFEN [Concomitant]
     Active Substance: IBUPROFEN
     Indication: Pain
  9. IBUPROFEN [Concomitant]
     Active Substance: IBUPROFEN
     Indication: Eye irritation

REACTIONS (5)
  - Eye irritation [Unknown]
  - Neck pain [Unknown]
  - Back pain [Unknown]
  - Pain [Unknown]
  - Off label use [Unknown]

NARRATIVE: CASE EVENT DATE: 20211111
